FAERS Safety Report 17340646 (Version 2)
Quarter: 2020Q1

REPORT INFORMATION
  Report Type: Spontaneous
  Country: JP (occurrence: JP)
  Receive Date: 20200129
  Receipt Date: 20200131
  Transmission Date: 20200409
  Serious: Yes (Other)
  Sender: FDA-Public Use
  Company Number: JP-PFIZER INC-2020033890

PATIENT
  Age: 70 Year
  Sex: Male

DRUGS (10)
  1. PANITUMUMAB [Concomitant]
     Active Substance: PANITUMUMAB
     Dosage: UNK, CYCLIC (6 COURSES)
  2. PANITUMUMAB [Concomitant]
     Active Substance: PANITUMUMAB
     Indication: RENAL CANCER METASTATIC
     Dosage: UNK UNK, CYCLIC (3 COURSES)
  3. FLUOROURACIL. [Concomitant]
     Active Substance: FLUOROURACIL
     Dosage: UNK, CYCLIC (9 COURSES)
  4. FLUOROURACIL. [Concomitant]
     Active Substance: FLUOROURACIL
     Dosage: UNK, CYCLIC (9 COURSES)
  5. PANITUMUMAB [Concomitant]
     Active Substance: PANITUMUMAB
     Dosage: UNK, CYCLIC (9 COURSES)
  6. FLUOROURACIL. [Concomitant]
     Active Substance: FLUOROURACIL
     Dosage: UNK, CYCLIC (6COURSES)
  7. OXALIPLATIN. [Suspect]
     Active Substance: OXALIPLATIN
     Dosage: UNK, CYCLIC (6 COURSES)
  8. OXALIPLATIN. [Suspect]
     Active Substance: OXALIPLATIN
     Indication: RENAL CANCER METASTATIC
     Dosage: UNK UNK, CYCLIC (3 COURSES)
  9. PANITUMUMAB [Concomitant]
     Active Substance: PANITUMUMAB
     Dosage: UNK, CYCLIC (9 COURSES)
  10. FLUOROURACIL. [Concomitant]
     Active Substance: FLUOROURACIL
     Indication: RECTAL CANCER METASTATIC
     Dosage: UNK, CYCLIC (3 COURSES)

REACTIONS (1)
  - Neuropathy peripheral [Unknown]
